FAERS Safety Report 12329572 (Version 1)
Quarter: 2016Q2

REPORT INFORMATION
  Report Type: Spontaneous
  Country: US (occurrence: US)
  Receive Date: 20160503
  Receipt Date: 20160503
  Transmission Date: 20160815
  Serious: Yes (Other)
  Sender: FDA-Public Use
  Company Number: PHHY2016US059911

PATIENT
  Age: 13 Year
  Sex: Male

DRUGS (4)
  1. BENZTROPINE [Suspect]
     Active Substance: BENZTROPINE
     Indication: EXTRAPYRAMIDAL DISORDER
     Dosage: 2 MG, TID
     Route: 065
  2. LORAZEPAM. [Suspect]
     Active Substance: LORAZEPAM
     Indication: EXTRAPYRAMIDAL DISORDER
     Dosage: 2 MG, TID
     Route: 065
  3. DIPHENHYDRAMINE. [Suspect]
     Active Substance: DIPHENHYDRAMINE
     Indication: EXTRAPYRAMIDAL DISORDER
     Dosage: 50 MG, TID
     Route: 065
  4. CLONIDINE. [Suspect]
     Active Substance: CLONIDINE
     Indication: EXTRAPYRAMIDAL DISORDER
     Dosage: 0.2 MG, BID
     Route: 065

REACTIONS (2)
  - Condition aggravated [Recovered/Resolved]
  - Extrapyramidal disorder [Recovered/Resolved]
